FAERS Safety Report 4539259-9 (Version None)
Quarter: 2004Q4

REPORT INFORMATION
  Report Type: 
  Country: None (occurrence: None)
  Receive Date: 20041228
  Receipt Date: 20041217
  Transmission Date: 20050328
  Serious: Yes (Other)
  Sender: FDA-Public Use
  Company Number: US-JNJFOC-20041205479

PATIENT
  Sex: Female
  Weight: 92.99 kg

DRUGS (7)
  1. REMICADE [Suspect]
     Indication: CROHN'S DISEASE
     Route: 042
  2. TRAZODONE HCL [Concomitant]
     Dosage: 100MG 2 TABSQHS
  3. PROMETHAZINE [Concomitant]
  4. CLINDINIUM [Concomitant]
  5. ENTOCORT [Concomitant]
     Dosage: 3 DAILY IN AM
  6. SEROQUEL [Concomitant]
     Dosage: 2 DAILY AT BEDTIME
  7. FLAGYL [Concomitant]

REACTIONS (6)
  - CHRONIC OBSTRUCTIVE AIRWAYS DISEASE [None]
  - FEELING HOT [None]
  - FLUSHING [None]
  - HEADACHE [None]
  - INFUSION RELATED REACTION [None]
  - WHEEZING [None]
